FAERS Safety Report 8601874 (Version 2)
Quarter: 2013Q1

REPORT INFORMATION
  Report Type: Spontaneous
  Country: GB (occurrence: GB)
  Receive Date: 20120606
  Receipt Date: 20130129
  Transmission Date: 20140127
  Serious: Yes (Life-Threatening)
  Sender: FDA-Public Use
  Company Number: PHHY2012GB046742

PATIENT
  Age: 26 Year
  Sex: Female

DRUGS (3)
  1. METHOTREXATE [Suspect]
     Indication: RHEUMATOID ARTHRITIS
     Dosage: 20 MG, WEEKLY
  2. HYDROXYCHLOROQUINE [Concomitant]
     Indication: RHEUMATOID ARTHRITIS
     Dosage: 400 MG, QD
  3. FOLIC ACID [Concomitant]
     Indication: RHEUMATOID ARTHRITIS
     Dosage: 5 MG, WEEKLY

REACTIONS (11)
  - Portal hypertension [Recovered/Resolved]
  - Ascites [Recovered/Resolved]
  - Hepatic cirrhosis [Recovered/Resolved]
  - Haematemesis [Recovered/Resolved]
  - Oesophageal varices haemorrhage [Recovered/Resolved]
  - Abdominal pain [Recovered/Resolved]
  - Abdominal tenderness [Recovered/Resolved]
  - Anaemia [Recovered/Resolved]
  - Liver disorder [Recovered/Resolved]
  - Hypovolaemic shock [Recovered/Resolved]
  - Fibrosis [Recovered/Resolved]
